FAERS Safety Report 8817070 (Version 1)
Quarter: 2012Q4

REPORT INFORMATION
  Report Type: Spontaneous
  Country: US (occurrence: None)
  Receive Date: 20121003
  Receipt Date: 20121003
  Transmission Date: 20130627
  Serious: Yes (Other)
  Sender: FDA-Public Use
  Company Number: None

PATIENT
  Age: 32 Year
  Sex: Female
  Weight: 59.88 kg

DRUGS (1)
  1. ORTHO EVRA [Suspect]
     Dosage: one patch  q wkx3 wks of 4 Cutaneous
     Dates: start: 20100916, end: 20120711

REACTIONS (1)
  - Human chorionic gonadotropin positive [None]
